FAERS Safety Report 6690928-4 (Version None)
Quarter: 2010Q2

REPORT INFORMATION
  Report Type: 
  Country: None (occurrence: None)
  Receive Date: 20100421
  Receipt Date: 20100409
  Transmission Date: 20101027
  Serious: Yes (Other)
  Sender: FDA-Public Use
  Company Number: GB-ELI_LILLY_AND_COMPANY-GB201004003616

PATIENT
  Sex: Female
  Weight: 65.2 kg

DRUGS (4)
  1. PEMETREXED [Suspect]
     Indication: NON-SMALL CELL LUNG CANCER
     Dosage: 890 MG, EVERY 3 WEEKS
     Route: 042
     Dates: start: 20100325
  2. CISPLATIN [Suspect]
     Indication: NON-SMALL CELL LUNG CANCER
     Dosage: 130 MG, EVERY 3 WEEKS
     Route: 042
     Dates: start: 20100325
  3. AG-013736(AXITINIB) [Suspect]
     Indication: NON-SMALL CELL LUNG CANCER
     Dosage: 5 MG, 2/D
     Route: 048
     Dates: start: 20100310, end: 20100326
  4. AG-013736(AXITINIB) [Suspect]
     Dosage: 5 MG, 2/D
     Route: 048

REACTIONS (1)
  - HYPERTENSION [None]
